FAERS Safety Report 17872930 (Version 1)
Quarter: 2020Q2

REPORT INFORMATION
  Report Type: Spontaneous
  Country: US (occurrence: US)
  Receive Date: 20200608
  Receipt Date: 20200608
  Transmission Date: 20200714
  Serious: Yes (Other)
  Sender: FDA-Public Use
  Company Number: NVSC2020US158218

PATIENT

DRUGS (1)
  1. BEOVU [Suspect]
     Active Substance: BROLUCIZUMAB-DBLL
     Indication: NEOVASCULAR AGE-RELATED MACULAR DEGENERATION
     Dosage: 6 MG,(MONTHLY, EVERY 25-31 DAYS FOR FIRST 3 DOSES, FOLLOWED BY ONE DOSE EVERY 8-12 WEEKS)
     Route: 047

REACTIONS (1)
  - Myocardial infarction [Unknown]
